FAERS Safety Report 21646747 (Version 1)
Quarter: 2022Q4

REPORT INFORMATION
  Report Type: Spontaneous
  Country: CA (occurrence: CA)
  Receive Date: 20221127
  Receipt Date: 20221127
  Transmission Date: 20230112
  Serious: Yes (Death)
  Sender: FDA-Public Use
  Company Number: CA-TEVA-2022-CA-2828080

PATIENT
  Age: 34 Year
  Sex: Female
  Weight: 95 kg

DRUGS (1)
  1. OLANZAPINE [Suspect]
     Active Substance: OLANZAPINE
     Indication: Schizophrenia
     Dosage: 5 MG
     Route: 048

REACTIONS (1)
  - Death [Fatal]
